FAERS Safety Report 9869279 (Version 3)
Quarter: 2014Q2

REPORT INFORMATION
  Report Type: Spontaneous
  Country: JP (occurrence: JP)
  Receive Date: 20140205
  Receipt Date: 20140423
  Transmission Date: 20141212
  Serious: Yes (Death)
  Sender: FDA-Public Use
  Company Number: JP-AMGEN-JPNSP2014006797

PATIENT
  Age: 78 Year
  Sex: Male
  Weight: 51 kg

DRUGS (6)
  1. VECTIBIX [Suspect]
     Indication: RECTAL CANCER
     Dosage: 250 MG, Q2WK
     Route: 041
     Dates: start: 20120816, end: 20120927
  2. ELPLAT [Concomitant]
     Indication: RECTAL CANCER
     Dosage: UNK UNK, Q2WK
     Route: 041
     Dates: start: 20120816, end: 20120927
  3. 5 FU [Concomitant]
     Indication: RECTAL CANCER
     Dosage: UNK UNK, Q2WK
     Route: 042
     Dates: start: 20120816, end: 20120927
  4. ISOVORIN                           /06682103/ [Concomitant]
     Indication: RECTAL CANCER
     Dosage: UNK UNK, Q2WK
     Route: 041
     Dates: start: 20120816, end: 20120927
  5. HUMALOG [Concomitant]
     Indication: DIABETES MELLITUS
     Dosage: UNK UNK, UNK
     Route: 042
  6. LANTUS [Concomitant]
     Indication: DIABETES MELLITUS
     Dosage: UNK UNK, UNK
     Route: 042

REACTIONS (1)
  - Interstitial lung disease [Fatal]
